FAERS Safety Report 9160438 (Version 1)
Quarter: 2013Q1

REPORT INFORMATION
  Report Type: Spontaneous
  Country: IT (occurrence: None)
  Receive Date: 20130220
  Receipt Date: 20130220
  Transmission Date: 20140127
  Serious: Yes (Other)
  Sender: FDA-Public Use
  Company Number: AUR-APL-2013-01394

PATIENT
  Sex: Female
  Weight: 50 kg

DRUGS (1)
  1. AMOXICILLIN (AMOXICILLIN) [Suspect]
     Indication: INFLAMMATION
     Route: 048
     Dates: start: 20120913, end: 20120915

REACTIONS (1)
  - Quality of life decreased [None]
